FAERS Safety Report 13830569 (Version 1)
Quarter: 2017Q3

REPORT INFORMATION
  Report Type: Spontaneous
  Country: US (occurrence: US)
  Receive Date: 20170803
  Receipt Date: 20170803
  Transmission Date: 20171127
  Serious: No
  Sender: FDA-Public Use
  Company Number: US-SA-2017SA090054

PATIENT
  Sex: Female

DRUGS (23)
  1. PRAVASTATIN SODIUM. [Concomitant]
     Active Substance: PRAVASTATIN SODIUM
  2. MINERALS NOS/VITAMINS NOS [Concomitant]
  3. FUROSEMIDE. [Concomitant]
     Active Substance: FUROSEMIDE
  4. VITAMIN K2 [Concomitant]
     Active Substance: MENAQUINONE 6
  5. PROGESTERONE. [Concomitant]
     Active Substance: PROGESTERONE
  6. PILOCARPINE. [Concomitant]
     Active Substance: PILOCARPINE
  7. ALIROCUMAB PREFILLED PEN [Concomitant]
     Active Substance: ALIROCUMAB
  8. KLOR-CON [Concomitant]
     Active Substance: POTASSIUM CHLORIDE
  9. 5 HYDROXYTRYPTOPHANE [Concomitant]
  10. METOPROLOL TARTRATE. [Concomitant]
     Active Substance: METOPROLOL TARTRATE
  11. OMEGA 3 [Concomitant]
     Active Substance: OMEGA-3 FATTY ACIDS
  12. ASPIRIN. [Concomitant]
     Active Substance: ASPIRIN
  13. AZOPT [Concomitant]
     Active Substance: BRINZOLAMIDE
  14. PRALUENT [Suspect]
     Active Substance: ALIROCUMAB
     Indication: HYPERCHOLESTEROLAEMIA
     Route: 058
  15. COENZYME Q10 [Concomitant]
     Active Substance: UBIDECARENONE
  16. SUPER B COMPLEX [Concomitant]
     Active Substance: CYANOCOBALAMIN\DEXPANTHENOL\NIACINAMIDE\PYRIDOXINE HYDROCHLORIDE\RIBOFLAVIN 5^-PHOSPHATE SODIUM\THIAMINE HYDROCHLORIDE\VITAMIN B COMPLEX
  17. MAGNESIUM OXIDE. [Concomitant]
     Active Substance: MAGNESIUM OXIDE
  18. ARMOUR THYROID [Concomitant]
     Active Substance: THYROID, PORCINE
  19. THREONINE [Concomitant]
  20. VITAMIN D3 [Concomitant]
     Active Substance: CHOLECALCIFEROL
  21. TIMOLOL MALEATE. [Concomitant]
     Active Substance: TIMOLOL MALEATE
  22. PILOCARPINE. [Concomitant]
     Active Substance: PILOCARPINE
  23. MELATONIN [Concomitant]
     Active Substance: MELATONIN

REACTIONS (2)
  - Depressed mood [Unknown]
  - Decreased interest [Unknown]
